FAERS Safety Report 20894205 (Version 1)
Quarter: 2022Q2

REPORT INFORMATION
  Report Type: Spontaneous
  Country: CZ (occurrence: CZ)
  Receive Date: 20220531
  Receipt Date: 20220531
  Transmission Date: 20220720
  Serious: Yes (Other)
  Sender: FDA-Public Use
  Company Number: CZ-BAYER-2022A072999

PATIENT
  Age: 23 Year
  Weight: 71 kg

DRUGS (2)
  1. KOVALTRY [Suspect]
     Active Substance: ANTIHEMOPHILIC FACTOR, HUMAN RECOMBINANT
     Indication: Factor VIII deficiency
     Dosage: 2000 IU, TIW - 3X PER WEEK RECOMMENDED, REALISTICALLY 2X PER WEEK
  2. JIVI [Concomitant]
     Active Substance: DAMOCTOCOG ALFA PEGOL
     Indication: Factor VIII deficiency
     Dosage: 4000 IU EVERY 4 DAYS
     Dates: start: 20210720

REACTIONS (3)
  - Haemarthrosis [None]
  - Haemarthrosis [None]
  - Haemarthrosis [None]
